FAERS Safety Report 7302441-1 (Version None)
Quarter: 2011Q1

REPORT INFORMATION
  Report Type: 
  Country: None (occurrence: None)
  Receive Date: 20110218
  Receipt Date: 20110209
  Transmission Date: 20110831
  Serious: Yes (Other)
  Sender: FDA-Public Use
  Company Number: US-NAPPMUNDI-GBR-2011-0007735

PATIENT
  Age: 38 Year
  Sex: Female

DRUGS (2)
  1. MORPHINE SULFATE [Suspect]
     Indication: PAIN
     Dosage: 30 MG, PRN
  2. PERCOCET [Suspect]
     Indication: PAIN
     Dosage: 4 TABLET, DAILY
     Route: 048

REACTIONS (1)
  - SLEEP APNOEA SYNDROME [None]
